FAERS Safety Report 6444527-X (Version None)
Quarter: 2009Q4

REPORT INFORMATION
  Report Type: 
  Country: None (occurrence: None)
  Receive Date: 20091117
  Receipt Date: 20091117
  Transmission Date: 20100525
  Serious: Yes (Life-Threatening)
  Sender: FDA-Public Use
  Company Number: None

PATIENT
  Age: 63 Year
  Sex: Female
  Weight: 51.2565 kg

DRUGS (1)
  1. DOFETILIDE 500 MCG [Suspect]
     Indication: ATRIAL FIBRILLATION
     Dosage: 500 MCG BID PO
     Route: 048
     Dates: start: 20091113, end: 20091116

REACTIONS (1)
  - TORSADE DE POINTES [None]
